FAERS Safety Report 5424580-2 (Version None)
Quarter: 2007Q3

REPORT INFORMATION
  Report Type: 
  Country: None (occurrence: None)
  Receive Date: 20070822
  Receipt Date: 20070807
  Transmission Date: 20080115
  Serious: Yes (Other)
  Sender: FDA-Public Use
  Company Number: 017004

PATIENT
  Sex: Female

DRUGS (2)
  1. TRAZODONE HCI(TRAZODONE HYDROCHLORIDE) TABLET, 50MG [Suspect]
     Indication: INSOMNIA
     Dosage: 25 MG, QHS, ORAL
     Route: 048
     Dates: start: 20010101
  2. TOPROL-XL [Concomitant]

REACTIONS (3)
  - ARTERIAL OCCLUSIVE DISEASE [None]
  - HEART RATE IRREGULAR [None]
  - PALPITATIONS [None]
